FAERS Safety Report 13653291 (Version 1)
Quarter: 2017Q2

REPORT INFORMATION
  Report Type: Spontaneous
  Country: US (occurrence: US)
  Receive Date: 20170614
  Receipt Date: 20170614
  Transmission Date: 20170830
  Serious: Yes (Hospitalization)
  Sender: FDA-Public Use
  Company Number: US-ROCHE-1230844

PATIENT
  Age: 58 Year
  Sex: Male

DRUGS (13)
  1. ATIVAN [Concomitant]
     Active Substance: LORAZEPAM
  2. DEGLYCYRRHIZINATED LICORICE [Concomitant]
  3. L-GLUTAMINE [Concomitant]
  4. TYLENOL [Concomitant]
     Active Substance: ACETAMINOPHEN
  5. VITAMIN D3 [Concomitant]
     Active Substance: CHOLECALCIFEROL
  6. LOVENOX [Concomitant]
     Active Substance: ENOXAPARIN SODIUM
  7. ASTRAGALUS [Concomitant]
  8. CREON [Concomitant]
     Active Substance: PANCRELIPASE AMYLASE\PANCRELIPASE LIPASE\PANCRELIPASE PROTEASE
  9. B-COMPLEX VITAMINS [Concomitant]
  10. PROTONIX [Concomitant]
     Active Substance: PANTOPRAZOLE SODIUM
  11. TRILIPIX [Concomitant]
     Active Substance: FENOFIBRIC ACID
  12. XELODA [Suspect]
     Active Substance: CAPECITABINE
     Indication: NEOPLASM MALIGNANT
     Route: 048
     Dates: start: 20130320, end: 20130525
  13. ZOFRAN [Concomitant]
     Active Substance: ONDANSETRON HYDROCHLORIDE

REACTIONS (1)
  - Abdominal pain [Not Recovered/Not Resolved]

NARRATIVE: CASE EVENT DATE: 20130525
